FAERS Safety Report 9260983 (Version 1)
Quarter: 2013Q1

REPORT INFORMATION
  Report Type: Spontaneous
  Country: US (occurrence: None)
  Receive Date: 20121212
  Receipt Date: 20121212
  Transmission Date: 20140127
  Serious: No
  Sender: FDA-Public Use
  Company Number: 1209USA002757

PATIENT
  Age: 47 Year
  Sex: Male

DRUGS (9)
  1. VICTRELIS [Suspect]
     Route: 048
  2. REBETOL [Suspect]
     Dosage: , ORAL
     Route: 048
  3. ASCORBIC ACID [Suspect]
  4. PEGASYS (PEGINTERFERON ALFA-2A) INJECTION, 180 DF [Concomitant]
  5. HYDROCODONE (HYDROCODONE) SYRUP [Concomitant]
  6. MORPHINE (MORPHINE) CAPSULE, 60 MG [Concomitant]
  7. PRILOSEC (OMEPRAZOLE) CAPSULE, 20 MG [Concomitant]
  8. VITAMIN D (UNSPECIFIED) (VITAMIN D (UNSPECIFIED)) CAPSULE [Concomitant]
  9. POTASSIUM (UNSPECIFIED) (POTASSIUM (UNSPECIFIED)) TABLET, 95 MG [Concomitant]

REACTIONS (3)
  - Malaise [None]
  - Pyrexia [None]
  - Depression [None]
